FAERS Safety Report 5690421-1 (Version None)
Quarter: 2008Q2

REPORT INFORMATION
  Report Type: 
  Country: None (occurrence: None)
  Receive Date: 20080401
  Receipt Date: 20080319
  Transmission Date: 20081010
  Serious: Yes (Hospitalization, Congenital Anomaly)
  Sender: FDA-Public Use
  Company Number: US-AMGEN-US270393

PATIENT
  Weight: 1.81 kg

DRUGS (5)
  1. ENBREL [Suspect]
     Indication: RHEUMATOID ARTHRITIS
     Route: 064
     Dates: start: 20070620, end: 20070730
  2. PRENATAL [Concomitant]
     Route: 064
     Dates: start: 20070620, end: 20080222
  3. CORTICOSTEROID NOS [Concomitant]
     Route: 064
     Dates: start: 20071130, end: 20071130
  4. CAFFEINE CITRATE [Concomitant]
     Route: 064
     Dates: start: 20080205, end: 20080222
  5. INFLUENZA VACCINE [Concomitant]
     Route: 064
     Dates: start: 20071030, end: 20071030

REACTIONS (5)
  - ATRIAL SEPTAL DEFECT [None]
  - PREMATURE BABY [None]
  - RENAL DYSPLASIA [None]
  - SINGLE UMBILICAL ARTERY [None]
  - VENTRICULAR SEPTAL DEFECT [None]
